FAERS Safety Report 23736329 (Version 2)
Quarter: 2024Q2

REPORT INFORMATION
  Report Type: Spontaneous
  Country: US (occurrence: US)
  Receive Date: 20240412
  Receipt Date: 20240516
  Transmission Date: 20240716
  Serious: No
  Sender: FDA-Public Use
  Company Number: US-SA-SAC20240404001058

PATIENT
  Age: 32 Year
  Sex: Female

DRUGS (4)
  1. DUPIXENT [Suspect]
     Active Substance: DUPILUMAB
     Indication: Asthma
     Dosage: 300 MG, QOW
     Route: 058
     Dates: start: 20220223
  2. HYDROCODONE [Concomitant]
     Active Substance: HYDROCODONE
  3. PROAIR HFA [Concomitant]
     Active Substance: ALBUTEROL SULFATE
  4. XANAX [Concomitant]
     Active Substance: ALPRAZOLAM

REACTIONS (4)
  - Dyspnoea [Not Recovered/Not Resolved]
  - Asthma [Unknown]
  - Injection site reaction [Recovered/Resolved]
  - Condition aggravated [Recovered/Resolved]

NARRATIVE: CASE EVENT DATE: 20240301
